FAERS Safety Report 19710985 (Version 1)
Quarter: 2021Q3

REPORT INFORMATION
  Report Type: Spontaneous
  Country: CZ (occurrence: CZ)
  Receive Date: 20210816
  Receipt Date: 20210816
  Transmission Date: 20211014
  Serious: Yes (Life-Threatening, Hospitalization)
  Sender: FDA-Public Use
  Company Number: ALC2021CZ004670

PATIENT

DRUGS (1)
  1. COLIRCUSI CICLOPLEJICO [Suspect]
     Active Substance: CYCLOPENTOLATE HYDROCHLORIDE
     Indication: FUNDOSCOPY
     Dosage: 1 DRP (DROP (1/12 MILLILITRE)) 1 DROP TO EACH EYE WAS ADMINISTERED.
     Route: 047
     Dates: start: 20210602, end: 20210602

REACTIONS (6)
  - Paraesthesia [Recovered/Resolved]
  - Nausea [Recovered/Resolved]
  - Drug hypersensitivity [Recovered/Resolved]
  - Localised oedema [Recovered/Resolved]
  - Throat tightness [Recovered/Resolved]
  - Tongue oedema [Recovered/Resolved]

NARRATIVE: CASE EVENT DATE: 20210602
